FAERS Safety Report 18441491 (Version 1)
Quarter: 2020Q4

REPORT INFORMATION
  Report Type: Spontaneous
  Country: US (occurrence: US)
  Receive Date: 20201029
  Receipt Date: 20201029
  Transmission Date: 20210114
  Serious: Yes (Death)
  Sender: FDA-Public Use
  Company Number: None

PATIENT
  Age: 70 Year
  Sex: Male
  Weight: 144 kg

DRUGS (14)
  1. CEFTRIAXONE 1GM IV ONCE [Concomitant]
     Dates: start: 20201006, end: 20201006
  2. DEXAMETHASONE 6MG IV DAILY [Concomitant]
     Dates: start: 20201006, end: 20201010
  3. VANCOMYCIN IV PER PROTOCOL [Concomitant]
     Dates: start: 20201012, end: 20201025
  4. REMDESIVIR. [Suspect]
     Active Substance: REMDESIVIR
     Indication: COVID-19 PNEUMONIA
     Route: 042
     Dates: start: 20201020, end: 20201027
  5. AZITHROMYCIN 500MG IV ONCE THEN PO ONCE [Concomitant]
     Dates: start: 20201006, end: 20201007
  6. METHYLPREDNISOLONE 40MG IV Q12HR [Concomitant]
     Dates: start: 20201012, end: 20201020
  7. CEFEPIME 1GM IV Q12HR [Concomitant]
     Dates: start: 20201012, end: 20201017
  8. FAMOTIDINE 20MG PO DAILY [Concomitant]
     Dates: start: 20201013, end: 20201027
  9. PANTOPRAZOLE 40MG PO BEDTIME [Concomitant]
     Dates: start: 20201007, end: 20201011
  10. VANCOMYCIN 500MG PO  Q6HR [Concomitant]
     Dates: start: 20201020, end: 20201027
  11. ZINC SULFATE 220MG PO BID [Concomitant]
     Dates: start: 20201006, end: 20201011
  12. MEROPENEM RENALLY DOSED [Concomitant]
     Dates: start: 20201017, end: 20201027
  13. METRONIDAZOLE 500MG IV Q8HR [Concomitant]
     Dates: start: 20201017, end: 20201027
  14. MICAFUNGIN 100MG IV DAILY [Concomitant]
     Dates: start: 20201020, end: 20201027

REACTIONS (16)
  - Aspartate aminotransferase increased [None]
  - White blood cell count increased [None]
  - PaO2/FiO2 ratio decreased [None]
  - Dialysis [None]
  - Blood albumin increased [None]
  - Alanine aminotransferase increased [None]
  - Protein total decreased [None]
  - Encephalopathy [None]
  - Red cell distribution width increased [None]
  - Haemoglobin decreased [None]
  - Haematocrit decreased [None]
  - Renal impairment [None]
  - Blood albumin decreased [None]
  - Blood alkaline phosphatase increased [None]
  - Blood gases abnormal [None]
  - Blood bicarbonate decreased [None]

NARRATIVE: CASE EVENT DATE: 20201027
